FAERS Safety Report 7518386-8 (Version None)
Quarter: 2011Q2

REPORT INFORMATION
  Report Type: 
  Country: None (occurrence: None)
  Receive Date: 20110602
  Receipt Date: 20110516
  Transmission Date: 20111010
  Serious: No
  Sender: FDA-Public Use
  Company Number: US-B.I. PHARMACEUTICALS,INC./RIDGEFIELD-2011-BP-13247BP

PATIENT
  Sex: Female

DRUGS (9)
  1. PRADAXA [Suspect]
     Indication: ATRIAL FIBRILLATION
     Dosage: 300 MG
     Route: 048
     Dates: start: 20110513, end: 20110513
  2. POTASSIUM + MAG [Concomitant]
     Indication: SUPPLEMENTATION THERAPY
  3. METOPROLOL TARTRATE [Concomitant]
     Indication: ATRIAL FIBRILLATION
  4. CYCLOBENZAPRINE [Concomitant]
     Indication: FIBROMYALGIA
  5. CRESTOR [Concomitant]
     Indication: BLOOD CHOLESTEROL
  6. VITAMIN D [Concomitant]
     Indication: SUPPLEMENTATION THERAPY
  7. FLECAINIDE ACETATE [Concomitant]
     Indication: ATRIAL FIBRILLATION
  8. GLUCOPHAGE [Concomitant]
     Indication: DIABETES MELLITUS
  9. LEVOTHYROXINE SODIUM [Concomitant]
     Indication: THYROID DISORDER

REACTIONS (2)
  - SWOLLEN TONGUE [None]
  - TONGUE DISORDER [None]
